FAERS Safety Report 11159636 (Version 1)
Quarter: 2015Q2

REPORT INFORMATION
  Report Type: Spontaneous
  Country: US (occurrence: US)
  Receive Date: 20150603
  Receipt Date: 20150603
  Transmission Date: 20150821
  Serious: No
  Sender: FDA-Public Use
  Company Number: US-ABBVIE-14P-163-1300266-00

PATIENT
  Sex: Male

DRUGS (3)
  1. GLEEVEC [Interacting]
     Active Substance: IMATINIB MESYLATE
     Indication: NEOPLASM MALIGNANT
     Route: 065
  2. DRONABINOL. [Suspect]
     Active Substance: DRONABINOL
     Indication: NAUSEA
     Route: 048
  3. DRONABINOL. [Suspect]
     Active Substance: DRONABINOL
     Indication: VOMITING

REACTIONS (2)
  - Drug interaction [Unknown]
  - Drug screen negative [Not Recovered/Not Resolved]
